FAERS Safety Report 6024567-5 (Version None)
Quarter: 2008Q4

REPORT INFORMATION
  Report Type: 
  Country: None (occurrence: None)
  Receive Date: 20081231
  Receipt Date: 20081029
  Transmission Date: 20090506
  Serious: No
  Sender: FDA-Public Use
  Company Number: US-BRISTOL-MYERS SQUIBB COMPANY-14387955

PATIENT
  Age: 43 Year
  Sex: Female
  Weight: 95 kg

DRUGS (8)
  1. ORENCIA [Suspect]
     Indication: RHEUMATOID ARTHRITIS
     Dates: start: 20071020
  2. PLAQUENIL [Concomitant]
  3. PREDNISONE [Concomitant]
  4. ARAVA [Concomitant]
  5. PROCARDIA [Concomitant]
  6. METOPROLOL [Concomitant]
  7. LISINOPRIL [Concomitant]
  8. PERCOCET [Concomitant]

REACTIONS (2)
  - COUGH [None]
  - WHEEZING [None]
